FAERS Safety Report 10998037 (Version 1)
Quarter: 2015Q2

REPORT INFORMATION
  Report Type: Spontaneous
  Country: US (occurrence: None)
  Receive Date: 20150407
  Receipt Date: 20150407
  Transmission Date: 20150821
  Serious: Yes (Other)
  Sender: FDA-Public Use
  Company Number: None

PATIENT
  Age: 82 Year
  Sex: Male

DRUGS (9)
  1. PREDNISONE. [Suspect]
     Active Substance: PREDNISONE
     Indication: OCCULT BLOOD POSITIVE
     Dosage: 3 PILLS FOR 4 DAYS 2 PILLS FOR 4 DAYS/ PILL FOR 28 DAYS AND 1/2 PILL FOR 24 DAYS.
     Route: 048
  2. ASPIRIN. [Suspect]
     Active Substance: ASPIRIN
  3. CHOLECALCIFEROL [Suspect]
     Active Substance: CHOLECALCIFEROL
  4. POTASSIUM GLUCONATE [Suspect]
     Active Substance: POTASSIUM GLUCONATE
  5. OMEPRAZOLE 20 MG [Suspect]
     Active Substance: OMEPRAZOLE
     Indication: PYURIA
     Route: 048
     Dates: start: 20140501, end: 20150202
  6. DAILY MULTIVITAMIN [Suspect]
     Active Substance: VITAMINS
  7. OMEPRAZOLE 20 MG [Suspect]
     Active Substance: OMEPRAZOLE
     Indication: OCCULT BLOOD POSITIVE
     Route: 048
     Dates: start: 20140501, end: 20150202
  8. OMEPRAZOLE 20 MG [Suspect]
     Active Substance: OMEPRAZOLE
     Indication: ACUTE KIDNEY INJURY
     Route: 048
     Dates: start: 20140501, end: 20150202
  9. MAGNESIUM [Suspect]
     Active Substance: MAGNESIUM

REACTIONS (1)
  - Acute kidney injury [None]
